FAERS Safety Report 6404025-6 (Version None)
Quarter: 2009Q4

REPORT INFORMATION
  Report Type: 
  Country: None (occurrence: None)
  Receive Date: 20091016
  Receipt Date: 20090813
  Transmission Date: 20100525
  Serious: No
  Sender: FDA-Public Use
  Company Number: US-ALEXION-A200900656

PATIENT
  Sex: Male

DRUGS (6)
  1. SOLIRIS [Suspect]
     Indication: PAROXYSMAL NOCTURNAL HAEMOGLOBINURIA
     Dosage: 600 MG, QW
     Route: 042
     Dates: start: 20090320, end: 20090401
  2. SOLIRIS [Suspect]
     Dosage: 900 MG, Q2W
     Route: 042
     Dates: start: 20090416
  3. WARFARIN SODIUM [Concomitant]
     Dosage: 5 MG, QD
     Route: 048
  4. MULTIVITAMIN                       /00831701/ [Concomitant]
     Dosage: UNK
     Route: 048
  5. LEXAPRO [Concomitant]
     Dosage: 10 MG, QD
     Route: 048
  6. FOLIC ACID [Concomitant]
     Dosage: 1 MG, QD
     Route: 048

REACTIONS (1)
  - HAEMOGLOBIN DECREASED [None]
